FAERS Safety Report 8499658-X (Version None)
Quarter: 2012Q3

REPORT INFORMATION
  Report Type: 
  Country: None (occurrence: None)
  Receive Date: 20120710
  Receipt Date: 20120706
  Transmission Date: 20120928
  Serious: No
  Sender: FDA-Public Use
  Company Number: US-PFIZER INC-2012162737

PATIENT
  Age: 69 Year
  Sex: Female
  Weight: 72.562 kg

DRUGS (1)
  1. PREMARIN [Suspect]
     Indication: MENOPAUSAL SYMPTOMS
     Dosage: UNK,3X/WEEK
     Route: 067
     Dates: start: 20090101, end: 20120101

REACTIONS (2)
  - PRURITUS GENITAL [None]
  - VULVOVAGINAL PRURITUS [None]
